FAERS Safety Report 4457056-X (Version None)
Quarter: 2004Q3

REPORT INFORMATION
  Report Type: 
  Country: None (occurrence: None)
  Receive Date: 20040830
  Receipt Date: 20040413
  Transmission Date: 20050211
  Serious: No
  Sender: FDA-Public Use
  Company Number: 205682

PATIENT
  Age: 71 Year
  Sex: Female
  Weight: 68.9 kg

DRUGS (13)
  1. XOLAIR [Suspect]
     Indication: ASTHMA
     Dosage: 225 MG, Q2W, SUBCUTANEOUS
     Route: 058
     Dates: start: 20040129
  2. VIOXX [Concomitant]
  3. QUININE SULFATE (QUININE SULFATE) [Concomitant]
  4. LISINOPRIL [Concomitant]
  5. SINGULAIR [Concomitant]
  6. FUROSEMIDE [Concomitant]
  7. NASONEX [Concomitant]
  8. ALBUTEROL (ALBUTEROL, ALBUTEROL SULFATE) [Concomitant]
  9. COMBIVENT (ALBUTEROL SULFATE, ALBUTEROL, IPRATROPIUM BROMIDE) [Concomitant]
  10. SEREVENT DISKUS (SALUMETEROL XINAFOATE) [Concomitant]
  11. FLOVENT [Concomitant]
  12. LIPITOR [Concomitant]
  13. TYLENOL [Concomitant]

REACTIONS (1)
  - PETECHIAE [None]
